FAERS Safety Report 15604734 (Version 1)
Quarter: 2018Q4

REPORT INFORMATION
  Report Type: Spontaneous
  Country: US (occurrence: US)
  Receive Date: 20181111
  Receipt Date: 20181111
  Transmission Date: 20190205
  Serious: Yes (Other)
  Sender: FDA-Public Use
  Company Number: PHHY2018US147329

PATIENT
  Age: 56 Year
  Sex: Male

DRUGS (3)
  1. AMIODARONE [Suspect]
     Active Substance: AMIODARONE
     Indication: ATRIAL FIBRILLATION
     Dosage: 2.288 MG, QH
     Route: 041
  2. PHENYTOIN. [Concomitant]
     Active Substance: PHENYTOIN
     Indication: SEIZURE
     Dosage: UNK
     Route: 065
  3. PHENOBARBITONE [Concomitant]
     Active Substance: PHENOBARBITAL
     Indication: SEIZURE
     Dosage: UNK
     Route: 065

REACTIONS (5)
  - Acute hepatic failure [Unknown]
  - Hepatic enzyme increased [Unknown]
  - Drug-induced liver injury [Unknown]
  - Hepatomegaly [Unknown]
  - Coagulopathy [Unknown]
